FAERS Safety Report 19591487 (Version 1)
Quarter: 2021Q3

REPORT INFORMATION
  Report Type: Spontaneous
  Country: US (occurrence: US)
  Receive Date: 20210721
  Receipt Date: 20210721
  Transmission Date: 20211014
  Serious: No
  Sender: FDA-Public Use
  Company Number: None

PATIENT
  Age: 84 Year
  Sex: Female
  Weight: 44.45 kg

DRUGS (20)
  1. FISH OIL [Concomitant]
     Active Substance: FISH OIL
  2. CLARITIN [Concomitant]
     Active Substance: LORATADINE
  3. SIMVASTATIN. [Concomitant]
     Active Substance: SIMVASTATIN
  4. COENZYME Q10 [Concomitant]
     Active Substance: DIETARY SUPPLEMENT\UBIDECARENONE
  5. CINNAMON. [Concomitant]
     Active Substance: CINNAMON
  6. PROBIOTIC [Concomitant]
     Active Substance: PROBIOTICS NOS
  7. DOCUSATE SODIUM. [Concomitant]
     Active Substance: DOCUSATE SODIUM
  8. SOOTHE EYE DROPS [Concomitant]
  9. BLINK TEARS EYE DROPS [Concomitant]
  10. SODIUM CHLORIDE EYE OINTMENT [Concomitant]
  11. FLUTICASONE PROPIONATE NASAL SPRAY [Concomitant]
     Active Substance: FLUTICASONE PROPIONATE
  12. MIRALAX [Concomitant]
     Active Substance: POLYETHYLENE GLYCOL 3350
  13. METAMUCIL [Concomitant]
     Active Substance: PLANTAGO SEED
  14. TIZANIDINE 4MG TABLETS [Suspect]
     Active Substance: TIZANIDINE HYDROCHLORIDE
     Indication: MYALGIA
     Dosage: ?          QUANTITY:1/2 TO 1;?
     Route: 048
     Dates: start: 20210504, end: 20210627
  15. ZINC. [Concomitant]
     Active Substance: ZINC
  16. GINGER ROOT [Concomitant]
     Active Substance: GINGER
  17. BENEFIBER  POWDER [Concomitant]
  18. CELECOXIB. [Concomitant]
     Active Substance: CELECOXIB
  19. PROLIA [Concomitant]
     Active Substance: DENOSUMAB
  20. NUTRITIONAL DRINKS [Concomitant]

REACTIONS (3)
  - Somnolence [None]
  - Dry mouth [None]
  - Loss of personal independence in daily activities [None]

NARRATIVE: CASE EVENT DATE: 20210505
